FAERS Safety Report 19459563 (Version 4)
Quarter: 2021Q3

REPORT INFORMATION
  Report Type: Report from Study
  Country: US (occurrence: US)
  Receive Date: 20210624
  Receipt Date: 20210828
  Transmission Date: 20211014
  Serious: Yes (Death, Other)
  Sender: FDA-Public Use
  Company Number: NVSC2021US136047

PATIENT
  Sex: Male

DRUGS (1)
  1. ILARIS [Suspect]
     Active Substance: CANAKINUMAB
     Indication: PRODUCT USED FOR UNKNOWN INDICATION
     Dosage: 300 MG, EVERY 6 WEEKS
     Route: 058

REACTIONS (5)
  - Death [Fatal]
  - Pneumonia [Unknown]
  - Cellulitis [Unknown]
  - Cough [Unknown]
  - Plasma cell myeloma [Unknown]
